FAERS Safety Report 5707865-1 (Version None)
Quarter: 2008Q2

REPORT INFORMATION
  Report Type: 
  Country: None (occurrence: None)
  Receive Date: 20080414
  Receipt Date: 20080402
  Transmission Date: 20081010
  Serious: Yes (Hospitalization, Other)
  Sender: FDA-Public Use
  Company Number: 100#08#2008-01819

PATIENT
  Age: 62 Year
  Sex: Male

DRUGS (4)
  1. CARBAMAZEPINE (CARBAMAZEPINE) [Suspect]
     Indication: HERPES ZOSTER
  2. AMITRIPTYLINE HCL [Suspect]
     Indication: TRIGEMINAL NEURALGIA
  3. PHENYTOIN [Suspect]
     Indication: DRUG USE FOR UNKNOWN INDICATION
  4. ACYCLOVIR [Concomitant]

REACTIONS (4)
  - DRUG RASH WITH EOSINOPHILIA AND SYSTEMIC SYMPTOMS [None]
  - HEPATIC ENZYME INCREASED [None]
  - HERPES ZOSTER [None]
  - SKIN TEST POSITIVE [None]
